FAERS Safety Report 18394683 (Version 1)
Quarter: 2020Q4

REPORT INFORMATION
  Report Type: Spontaneous
  Country: FR (occurrence: FR)
  Receive Date: 20201017
  Receipt Date: 20201017
  Transmission Date: 20210114
  Serious: Yes (Other)
  Sender: FDA-Public Use
  Company Number: NVSC2020FR277614

PATIENT
  Age: 65 Year
  Sex: Female

DRUGS (5)
  1. TERCIAN [Suspect]
     Active Substance: CYAMEMAZINE
     Indication: MEDICATION ERROR
     Dosage: 25 MG, ONCE/SINGLE (COMPRIM? PELLICUL? S?CABLE)
     Route: 048
     Dates: start: 20201005
  2. CLOZAPINE. [Suspect]
     Active Substance: CLOZAPINE
     Indication: MEDICATION ERROR
     Dosage: 100 MG, ONCE/SINGLE
     Route: 048
     Dates: start: 20201005
  3. SERESTA [Suspect]
     Active Substance: OXAZEPAM
     Indication: MEDICATION ERROR
     Dosage: 10 MG, ONCE/SINGLE
     Route: 048
     Dates: start: 20201005
  4. AKINETON [Suspect]
     Active Substance: BIPERIDEN HYDROCHLORIDE
     Indication: MEDICATION ERROR
     Dosage: 4 MG, ONCE/SINGLE (COMPRIM? ENROB? ? LIB?RATION PROLONG?E)
     Route: 048
     Dates: start: 20201005
  5. LAMOTRIGINE. [Suspect]
     Active Substance: LAMOTRIGINE
     Indication: MEDICATION ERROR
     Dosage: 100 MG, ONCE/SINGLE
     Route: 048
     Dates: start: 20201005

REACTIONS (3)
  - Somnolence [Unknown]
  - Wrong patient received product [Recovered/Resolved]
  - Medication error [Recovered/Resolved]

NARRATIVE: CASE EVENT DATE: 20201005
